FAERS Safety Report 5253029-8 (Version None)
Quarter: 2007Q1

REPORT INFORMATION
  Report Type: 
  Country: None (occurrence: None)
  Receive Date: 20070301
  Receipt Date: 20070220
  Transmission Date: 20070707
  Serious: Yes (Hospitalization)
  Sender: FDA-Public Use
  Company Number: GB-ROCHE-484296

PATIENT
  Age: 72 Year
  Sex: Female
  Weight: 92.8 kg

DRUGS (1)
  1. XENICAL [Suspect]
     Indication: OBESITY
     Route: 048
     Dates: start: 20061225, end: 20070218

REACTIONS (1)
  - MYOCARDIAL INFARCTION [None]
